FAERS Safety Report 10101216 (Version 1)
Quarter: 2014Q2

REPORT INFORMATION
  Report Type: Spontaneous
  Country: IT (occurrence: None)
  Receive Date: 20140422
  Receipt Date: 20140422
  Transmission Date: 20141212
  Serious: Yes (Death)
  Sender: FDA-Public Use
  Company Number: 2014IT00360

PATIENT
  Sex: Female

DRUGS (2)
  1. CARBOPLATIN (CARBOPLATIN) INJECTION [Suspect]
     Indication: OVARIAN CANCER
     Dosage: AUC SIX CYCLES?
  2. PACLITAXEL [Suspect]
     Indication: OVARIAN CANCER

REACTIONS (1)
  - Intestinal perforation [None]
